FAERS Safety Report 13143455 (Version 1)
Quarter: 2017Q1

REPORT INFORMATION
  Report Type: Spontaneous
  Country: US (occurrence: US)
  Receive Date: 20170123
  Receipt Date: 20170123
  Transmission Date: 20170428
  Serious: Yes (Other)
  Sender: FDA-Public Use
  Company Number: PHHY2017US008028

PATIENT
  Age: 15 Year
  Sex: Female

DRUGS (2)
  1. FLUOXETINE [Suspect]
     Active Substance: FLUOXETINE HYDROCHLORIDE
     Indication: AFFECTIVE DISORDER
     Route: 065
  2. METHYLPHENIDATE HYDROCHLORIDE. [Suspect]
     Active Substance: METHYLPHENIDATE HYDROCHLORIDE
     Indication: AFFECTIVE DISORDER
     Route: 065

REACTIONS (8)
  - Hyperhidrosis [Unknown]
  - Serotonin syndrome [Unknown]
  - Mydriasis [Unknown]
  - Hyperreflexia [Unknown]
  - Clonus [Unknown]
  - Muscular weakness [Unknown]
  - Depression [Unknown]
  - Hypertonia [Unknown]
